FAERS Safety Report 19958632 (Version 9)
Quarter: 2022Q1

REPORT INFORMATION
  Report Type: Report from Study
  Country: AU (occurrence: None)
  Receive Date: 20211015
  Receipt Date: 20220104
  Transmission Date: 20220423
  Serious: Yes (Hospitalization)
  Sender: FDA-Public Use
  Company Number: AU-EISAI MEDICAL RESEARCH-EC-2021-101281

PATIENT
  Age: 62 Year
  Sex: Female
  Weight: 67.4 kg

DRUGS (12)
  1. LENVATINIB [Suspect]
     Active Substance: LENVATINIB
     Indication: Renal cell carcinoma
     Route: 048
     Dates: start: 20210719, end: 20210829
  2. LENVATINIB [Suspect]
     Active Substance: LENVATINIB
     Route: 048
     Dates: start: 20210910, end: 20211008
  3. LENVATINIB [Suspect]
     Active Substance: LENVATINIB
     Route: 048
     Dates: start: 20211018
  4. PEMBROLIZUMAB [Suspect]
     Active Substance: PEMBROLIZUMAB
     Indication: Renal cell carcinoma
     Route: 042
     Dates: start: 20210719, end: 20210719
  5. PEMBROLIZUMAB [Suspect]
     Active Substance: PEMBROLIZUMAB
     Route: 042
     Dates: start: 20211011
  6. LEVOTHYROXINE SODIUM [Concomitant]
     Active Substance: LEVOTHYROXINE SODIUM
     Dates: start: 20210721, end: 20211008
  7. LEVOTHYROXINE SODIUM [Concomitant]
     Active Substance: LEVOTHYROXINE SODIUM
  8. PERINDOPRIL [Concomitant]
     Active Substance: PERINDOPRIL
     Dates: start: 201501
  9. SPIRONOLACTONE [Concomitant]
     Active Substance: SPIRONOLACTONE
     Dates: start: 20210810
  10. ACETAMINOPHEN [Concomitant]
     Active Substance: ACETAMINOPHEN
     Dates: start: 20210826
  11. DIPROSONE [Concomitant]
     Active Substance: BETAMETHASONE DIPROPIONATE
     Dates: start: 20211006
  12. OXYCODONE HYDROCHLORIDE [Concomitant]
     Active Substance: OXYCODONE HYDROCHLORIDE
     Dates: start: 20210827

REACTIONS (1)
  - Hypertension [Recovered/Resolved]

NARRATIVE: CASE EVENT DATE: 20211008
